FAERS Safety Report 17895655 (Version 1)
Quarter: 2020Q2

REPORT INFORMATION
  Report Type: Spontaneous
  Country: US (occurrence: US)
  Receive Date: 20200612
  Receipt Date: 20200612
  Transmission Date: 20200714
  Serious: Yes (Life-Threatening)
  Sender: FDA-Public Use
  Company Number: None

PATIENT
  Age: 71 Year
  Sex: Male
  Weight: 97 kg

DRUGS (2)
  1. ENOXAPARIN (ENOXAPARIN 40MG/0.4ML INJ) [Suspect]
     Active Substance: ENOXAPARIN
     Indication: PULMONARY EMBOLISM
     Route: 058
     Dates: start: 20200411, end: 20200514
  2. REMDESIVIR (EUA) (REMDESIVIR (EUA)) [Suspect]
     Active Substance: REMDESIVIR
     Indication: COVID-19
     Route: 042
     Dates: start: 20200512, end: 20200516

REACTIONS (3)
  - Hypotension [None]
  - Melaena [None]
  - Blood creatinine increased [None]

NARRATIVE: CASE EVENT DATE: 20200514
